FAERS Safety Report 9644229 (Version 2)
Quarter: 2013Q4

REPORT INFORMATION
  Report Type: Spontaneous
  Country: US (occurrence: US)
  Receive Date: 20131024
  Receipt Date: 20131024
  Transmission Date: 20140711
  Serious: Yes (Other)
  Sender: FDA-Public Use
  Company Number: US-ROCHE-1251371

PATIENT
  Age: 61 Year
  Sex: Female
  Weight: 86.71 kg

DRUGS (12)
  1. XOLAIR [Suspect]
     Indication: ASTHMA
     Route: 058
     Dates: start: 20130703
  2. XOLAIR [Suspect]
     Route: 065
     Dates: start: 20131016
  3. DULERA [Concomitant]
     Dosage: 200/5 MCG
     Route: 055
  4. METFORMIN [Concomitant]
     Route: 065
  5. ALBUTEROL [Concomitant]
     Dosage: 1 PUFF AS NEEDED
     Route: 055
  6. AZOR (UNITED STATES) [Concomitant]
     Dosage: 5-20 MG
     Route: 048
  7. ATROVENT [Concomitant]
     Route: 055
  8. NEXIUM [Concomitant]
     Route: 065
  9. IBUPROFEN [Concomitant]
  10. BENGAY PATCH [Concomitant]
  11. ZOCOR [Concomitant]
     Route: 065
  12. ZYRTEC [Concomitant]
     Route: 048

REACTIONS (8)
  - Injection site pain [Unknown]
  - Fatigue [Recovered/Resolved]
  - Hallucination [Unknown]
  - Diarrhoea [Recovered/Resolved]
  - Chest discomfort [Recovered/Resolved]
  - Blood pressure decreased [Recovered/Resolved]
  - Arthralgia [Recovered/Resolved]
  - Arthralgia [Unknown]
